FAERS Safety Report 8372809-3 (Version None)
Quarter: 2012Q2

REPORT INFORMATION
  Report Type: 
  Country: None (occurrence: None)
  Receive Date: 20120521
  Receipt Date: 20120507
  Transmission Date: 20120825
  Serious: Yes (Disabling)
  Sender: FDA-Public Use
  Company Number: IT-MYLANLABS-2012S1009700

PATIENT
  Sex: Female

DRUGS (2)
  1. CYCLOPHOSPHAMIDE [Suspect]
     Indication: BREAST CANCER
     Route: 064
  2. EPIRUBICIN [Suspect]
     Indication: BREAST CANCER
     Route: 064

REACTIONS (2)
  - CARDIOMYOPATHY [None]
  - MATERNAL EXPOSURE DURING PREGNANCY [None]
